FAERS Safety Report 21438262 (Version 6)
Quarter: 2022Q4

REPORT INFORMATION
  Report Type: Spontaneous
  Country: US (occurrence: US)
  Receive Date: 20221011
  Receipt Date: 20221222
  Transmission Date: 20230113
  Serious: Yes (Hospitalization)
  Sender: FDA-Public Use
  Company Number: US-Melinta Therapeutics, LLC-US-MLNT-22-00138

PATIENT
  Age: 70 Year
  Sex: Male
  Weight: 100.7 kg

DRUGS (13)
  1. KIMYRSA [Suspect]
     Active Substance: ORITAVANCIN DIPHOSPHATE
     Indication: Device related infection
     Route: 041
     Dates: start: 20220810, end: 20220810
  2. KIMYRSA [Suspect]
     Active Substance: ORITAVANCIN DIPHOSPHATE
     Indication: Staphylococcal infection
     Route: 041
     Dates: start: 20220817, end: 20220817
  3. KIMYRSA [Suspect]
     Active Substance: ORITAVANCIN DIPHOSPHATE
     Indication: Propionibacterium infection
     Dosage: PLANNED DOSE WAS 800 MG, HOWEVER PATIENT RECEIVED ONLY 430 MG DUE TO REACTION.
     Route: 041
     Dates: start: 20220824, end: 20220824
  4. TYLENOL [Concomitant]
     Active Substance: ACETAMINOPHEN
     Indication: Premedication
     Dosage: NOT PROVIDED.
     Dates: start: 20220824, end: 20220824
  5. NORVASC [Concomitant]
     Active Substance: AMLODIPINE BESYLATE
     Indication: Hypertension
     Route: 048
     Dates: start: 20211101, end: 20220826
  6. ASPIRIN [Concomitant]
     Active Substance: ASPIRIN
     Indication: Product used for unknown indication
     Route: 048
  7. CELEBREX [Concomitant]
     Active Substance: CELECOXIB
     Indication: Product used for unknown indication
     Dosage: IN THE MORNING AND AT BEDTIME.
     Route: 048
     Dates: start: 20220201
  8. VASOTEC [Concomitant]
     Active Substance: ENALAPRIL MALEATE
     Indication: Hypertension
     Route: 048
     Dates: start: 20210907, end: 20220901
  9. GLUCOTROL XL [Concomitant]
     Active Substance: GLIPIZIDE
     Indication: Type 2 diabetes mellitus
     Dosage: 2 IN THE MORNING, AND 2 WITH SUPPER.
     Route: 048
     Dates: start: 20220419, end: 20220901
  10. GLUCOPHAGE XR [Concomitant]
     Active Substance: METFORMIN HYDROCHLORIDE
     Indication: Type 2 diabetes mellitus
     Dosage: TAKE WITH MEALS.
     Route: 048
     Dates: start: 20220427, end: 20220831
  11. LOPRESSOR [Concomitant]
     Active Substance: METOPROLOL TARTRATE
     Indication: Hypertension
     Route: 048
     Dates: start: 20210824, end: 20220826
  12. PRILOSEC [Concomitant]
     Active Substance: OMEPRAZOLE MAGNESIUM
     Indication: Gastrooesophageal reflux disease
     Route: 048
     Dates: start: 20220613, end: 20220831
  13. CRESTOR [Concomitant]
     Active Substance: ROSUVASTATIN CALCIUM
     Indication: Product used for unknown indication
     Route: 048
     Dates: start: 20210902, end: 20220901

REACTIONS (14)
  - Bacteraemia [Unknown]
  - Myocardial injury [Unknown]
  - Myocardial ischaemia [Unknown]
  - Sepsis [Unknown]
  - Infusion related reaction [Recovered/Resolved]
  - Wheezing [Recovered/Resolved]
  - Back pain [Recovered/Resolved]
  - Feeling cold [Recovered/Resolved]
  - Dyspnoea [Recovered/Resolved]
  - Chills [Recovered/Resolved]
  - Peripheral coldness [Recovered/Resolved]
  - Incorrect dose administered [Unknown]
  - Multiple use of single-use product [Unknown]
  - Off label use [Unknown]

NARRATIVE: CASE EVENT DATE: 20220810
